FAERS Safety Report 9530030 (Version 2)
Quarter: 2013Q3

REPORT INFORMATION
  Report Type: Spontaneous
  Country: DE (occurrence: DE)
  Receive Date: 20130917
  Receipt Date: 20130917
  Transmission Date: 20140515
  Serious: Yes (Other)
  Sender: FDA-Public Use
  Company Number: DE-EISAI INC-E2007-01289-SPO-DE

PATIENT
  Sex: Male
  Weight: 78 kg

DRUGS (5)
  1. LACOSAMID [Concomitant]
     Indication: EPILEPSY
     Dosage: 400 MG DAILY
     Route: 048
     Dates: start: 201110
  2. MIRTAZAPIN [Concomitant]
     Indication: DEPRESSION
     Route: 048
     Dates: start: 201110
  3. MIRTAZAPIN [Concomitant]
     Indication: SLEEP DISORDER
  4. FYCOMPA (PERAMPANEL) [Suspect]
     Indication: EPILEPSY
     Route: 048
     Dates: start: 20130227, end: 20130826
  5. LEVETIRACETAM [Concomitant]
     Indication: EPILEPSY
     Dosage: 2250 MG DAILY
     Route: 048
     Dates: start: 201110

REACTIONS (1)
  - Cognitive disorder [Unknown]
